FAERS Safety Report 7991538-9 (Version None)
Quarter: 2011Q4

REPORT INFORMATION
  Report Type: 
  Country: None (occurrence: None)
  Receive Date: 20111219
  Receipt Date: 20111215
  Transmission Date: 20120403
  Serious: Yes (Hospitalization)
  Sender: FDA-Public Use
  Company Number: CA-ROCHE-1022702

PATIENT
  Sex: Male
  Weight: 94.432 kg

DRUGS (7)
  1. MULTI-VITAMIN SUPPLEMENT [Concomitant]
  2. PERINDOPRIL ERBUMINE [Concomitant]
  3. HYDROMORPHONE HCL [Concomitant]
  4. ACTEMRA [Suspect]
     Indication: RHEUMATOID ARTHRITIS
     Route: 042
     Dates: start: 20110706
  5. DICLOFENAC [Concomitant]
  6. FOLIC ACID [Concomitant]
  7. METHOTREXATE [Concomitant]

REACTIONS (3)
  - ABASIA [None]
  - PAIN [None]
  - JOINT RANGE OF MOTION DECREASED [None]
